FAERS Safety Report 6667133-0 (Version None)
Quarter: 2010Q2

REPORT INFORMATION
  Report Type: 
  Country: None (occurrence: None)
  Receive Date: 20100405
  Receipt Date: 20100326
  Transmission Date: 20101027
  Serious: Yes (Death, Hospitalization, Other)
  Sender: FDA-Public Use
  Company Number: US-AMGEN-QUU394089

PATIENT
  Sex: Female
  Weight: 95.3 kg

DRUGS (27)
  1. NPLATE [Suspect]
     Indication: IDIOPATHIC THROMBOCYTOPENIC PURPURA
     Dates: start: 20081119, end: 20090505
  2. CORTICOSTEROIDS [Concomitant]
     Dates: start: 20081020
  3. ALOXI [Concomitant]
  4. CISPLATIN [Concomitant]
     Dates: start: 20081020
  5. AVASTIN [Concomitant]
     Dates: start: 20081020
  6. ARANESP [Concomitant]
     Dates: start: 20081208
  7. RITUXAN [Concomitant]
     Dates: start: 20090128
  8. MAGNESIUM SULFATE [Concomitant]
     Dates: start: 20081020
  9. BENADRYL [Concomitant]
     Dates: start: 20090128
  10. LASIX [Concomitant]
     Dates: start: 20090205
  11. TAGAMET [Concomitant]
     Dates: start: 20090305
  12. ABRAXANE [Concomitant]
     Dates: start: 20090420
  13. NAVELBINE [Concomitant]
     Dates: start: 20090420
  14. NEULASTA [Concomitant]
     Dates: start: 20071218
  15. METHADONE [Concomitant]
  16. CALCIUM [Concomitant]
  17. PROZAC [Concomitant]
     Route: 048
  18. DIOVAN [Concomitant]
  19. DIAZEPAM [Concomitant]
  20. COMPAZINE [Concomitant]
     Route: 048
  21. COLACE [Concomitant]
  22. MS CONTIN [Concomitant]
  23. PROTONIX [Concomitant]
  24. MIRALAX [Concomitant]
  25. PREDNISONE TAB [Concomitant]
  26. IXEMPRA KIT [Concomitant]
     Dates: start: 20090305
  27. DECADRON [Concomitant]
     Dates: start: 20071217

REACTIONS (6)
  - ANXIETY [None]
  - CONSTIPATION [None]
  - HEPATIC HAEMATOMA [None]
  - MALIGNANT NEOPLASM PROGRESSION [None]
  - MUCOSAL INFLAMMATION [None]
  - PAIN [None]
